FAERS Safety Report 7364431-2 (Version None)
Quarter: 2011Q1

REPORT INFORMATION
  Report Type: 
  Country: None (occurrence: None)
  Receive Date: 20110315
  Receipt Date: 20110315
  Transmission Date: 20110831
  Serious: Yes (Disabling, Other)
  Sender: FDA-Public Use
  Company Number: None

PATIENT
  Age: 72 Year
  Sex: Male
  Weight: 70.0807 kg

DRUGS (10)
  1. LEVOTHYROXINE SODIUM [Concomitant]
  2. OMEPRAZOLE [Concomitant]
  3. ACID [Concomitant]
  4. LEVAQUIN [Suspect]
     Indication: INFECTION
     Dates: start: 20110307, end: 20110310
  5. SENNA-S [Concomitant]
  6. FLUOXETINE [Concomitant]
  7. METRONIDAZOLE [Concomitant]
  8. RANITIDINE [Concomitant]
  9. ASCORBIC [Concomitant]
  10. VITAMIN D [Concomitant]

REACTIONS (2)
  - TENDONITIS [None]
  - WHEELCHAIR USER [None]
